FAERS Safety Report 6034678-6 (Version None)
Quarter: 2009Q1

REPORT INFORMATION
  Report Type: 
  Country: None (occurrence: None)
  Receive Date: 20090108
  Receipt Date: 20090108
  Transmission Date: 20090719
  Serious: Yes (Other)
  Sender: FDA-Public Use
  Company Number: None

PATIENT
  Sex: Male
  Weight: 80.91 kg

DRUGS (1)
  1. LISINOPRIL [Suspect]
     Dosage: ORAL
     Route: 048
     Dates: start: 20081216, end: 20090107

REACTIONS (1)
  - ANGIOEDEMA [None]
